FAERS Safety Report 17011822 (Version 1)
Quarter: 2019Q4

REPORT INFORMATION
  Report Type: Spontaneous
  Country: GB (occurrence: GB)
  Receive Date: 20191108
  Receipt Date: 20191108
  Transmission Date: 20200122
  Serious: Yes (Death)
  Sender: FDA-Public Use
  Company Number: GB-PERRIGO-19GB013155

PATIENT
  Age: 11 Month
  Sex: Female

DRUGS (2)
  1. DIORALYTE                          /00386201/ [Suspect]
     Active Substance: DEXTROSE\POTASSIUM CHLORIDE\SODIUM BICARBONATE\SODIUM CHLORIDE
     Indication: DIARRHOEA
     Dosage: UNK
     Dates: start: 2015, end: 2015
  2. PARACETAMOL [Suspect]
     Active Substance: ACETAMINOPHEN
     Indication: PRODUCT USED FOR UNKNOWN INDICATION
     Dosage: UNK
     Route: 048
     Dates: start: 2015, end: 2015

REACTIONS (2)
  - Symptom masked [Fatal]
  - Sepsis [Fatal]

NARRATIVE: CASE EVENT DATE: 2015
